FAERS Safety Report 7038036-7 (Version None)
Quarter: 2010Q4

REPORT INFORMATION
  Report Type: 
  Country: None (occurrence: None)
  Receive Date: 20101011
  Receipt Date: 20100830
  Transmission Date: 20110411
  Serious: Yes (Death)
  Sender: FDA-Public Use
  Company Number: PHHY2010JP57626

PATIENT
  Sex: Female
  Weight: 54 kg

DRUGS (18)
  1. NEORAL [Suspect]
     Indication: RENAL TRANSPLANT
     Dosage: 400 MG, QD
     Route: 048
     Dates: start: 20090922
  2. NEORAL [Suspect]
     Dosage: 225 MG DAILY
     Dates: start: 20090923
  3. NEORAL [Suspect]
     Dosage: 100 MG/DAY
     Dates: start: 20100924
  4. NEORAL [Suspect]
     Dosage: 250 MG, QD
     Route: 048
     Dates: start: 20090927, end: 20091007
  5. NEORAL [Suspect]
     Dosage: 100 MG DAILY
     Dates: start: 20090928
  6. NEORAL [Suspect]
     Dosage: 150 MG DAILY
     Dates: start: 20100930
  7. NEORAL [Suspect]
     Dosage: 125 MG DAILY
     Dates: start: 20091006, end: 20091007
  8. SANDIMMUNE [Concomitant]
     Indication: RENAL TRANSPLANT
     Dosage: 120MG
     Dates: start: 20090924, end: 20090926
  9. SIMULECT [Concomitant]
     Indication: RENAL TRANSPLANT
     Dosage: 20 MG
     Dates: start: 20090924, end: 20090928
  10. CELL CEPT [Concomitant]
     Indication: RENAL TRANSPLANT
     Dosage: 1000MG
     Route: 048
     Dates: start: 20090910
  11. CELL CEPT [Concomitant]
     Dosage: 1500MG
  12. SOL-MELCORT [Concomitant]
     Indication: RENAL TRANSPLANT
     Dosage: 250 MG
     Dates: start: 20090924, end: 20090926
  13. SOL-MELCORT [Concomitant]
     Dosage: 20MG
  14. MEDROL [Concomitant]
     Indication: RENAL TRANSPLANT
     Dosage: 8 MG
     Route: 048
     Dates: start: 20090917
  15. MEDROL [Concomitant]
     Dosage: 20 MG
  16. FLUMARIN [Concomitant]
     Dosage: 2MG
     Dates: start: 20090924, end: 20090929
  17. FLOMOX [Concomitant]
     Dosage: 300MG
     Route: 048
     Dates: start: 20090930, end: 20091026
  18. VALGANCICLOVIR HCL [Concomitant]
     Dosage: 450 MG
     Route: 048
     Dates: start: 20091109

REACTIONS (1)
  - DEATH [None]
